FAERS Safety Report 25328313 (Version 2)
Quarter: 2025Q2

REPORT INFORMATION
  Report Type: Spontaneous
  Country: GR (occurrence: GR)
  Receive Date: 20250518
  Receipt Date: 20250606
  Transmission Date: 20250716
  Serious: No
  Sender: AMGEN
  Company Number: GR-PFIZER INC-PV202500058438

PATIENT
  Age: 64 Year
  Sex: Male

DRUGS (1)
  1. ENBREL [Suspect]
     Active Substance: ETANERCEPT
     Indication: Ankylosing spondylitis
     Dosage: 50 MG, WEEKLY
     Route: 065

REACTIONS (1)
  - Urethral papilloma [Unknown]
